FAERS Safety Report 10516991 (Version 1)
Quarter: 2014Q4

REPORT INFORMATION
  Report Type: Spontaneous
  Country: US (occurrence: None)
  Receive Date: 20141003
  Receipt Date: 20141003
  Transmission Date: 20150528
  Serious: Yes (Hospitalization, Other)
  Sender: FDA-Public Use
  Company Number: 1285990

PATIENT
  Age: 23 Year
  Sex: Male

DRUGS (5)
  1. COPEGUS [Suspect]
     Active Substance: RIBAVIRIN
     Indication: ADRENOGENITAL SYNDROME
     Dates: start: 20130426, end: 20131004
  2. KEPPRA [Concomitant]
     Active Substance: LEVETIRACETAM
  3. INCIVEK [Suspect]
     Active Substance: TELAPREVIR
     Indication: ADRENOGENITAL SYNDROME
     Dates: end: 20131004
  4. CELEXA (UNITED STATES) (CITALOPRAM HYDROBROMIDE) [Concomitant]
  5. PEGASYS [Suspect]
     Active Substance: PEGINTERFERON ALFA-2A
     Indication: HEPATITIS C
     Dates: start: 20130426, end: 20131004

REACTIONS (1)
  - Seizure [None]

NARRATIVE: CASE EVENT DATE: 20130924
